FAERS Safety Report 10162422 (Version 1)
Quarter: 2014Q2

REPORT INFORMATION
  Report Type: Spontaneous
  Country: US (occurrence: US)
  Receive Date: 20140509
  Receipt Date: 20140509
  Transmission Date: 20141212
  Serious: No
  Sender: FDA-Public Use
  Company Number: US-GLAXOSMITHKLINE-A1025056A

PATIENT
  Sex: Male

DRUGS (4)
  1. MUPIROCIN [Suspect]
     Indication: BACTERIAL DISEASE CARRIER
     Route: 045
  2. ANTIBIOTICS [Concomitant]
     Route: 050
  3. TOBRAMYCIN [Concomitant]
     Route: 042
  4. UNKNOWN [Concomitant]

REACTIONS (1)
  - Incorrect route of drug administration [Recovered/Resolved]
